FAERS Safety Report 16322518 (Version 2)
Quarter: 2019Q2

REPORT INFORMATION
  Report Type: Report from Study
  Country: US (occurrence: US)
  Receive Date: 20190516
  Receipt Date: 20190601
  Transmission Date: 20190711
  Serious: Yes (Other)
  Sender: FDA-Public Use
  Company Number: US-TEVA-2019-US-1049577

PATIENT
  Age: 59 Year
  Sex: Male

DRUGS (7)
  1. FLUOROURACIL. [Suspect]
     Active Substance: FLUOROURACIL
     Indication: RECTOSIGMOID CANCER
     Dosage: DURING THE FIRST AND LAST CYCLES OF THE FIRST (2 MONTHS; 4 CYCLES) AND SECOND (10 MONTHS; 17 CYCL...
     Route: 065
  2. FLUOROURACIL. [Suspect]
     Active Substance: FLUOROURACIL
     Dosage: DURING THE LAST CYCLE OF THE SECOND THERAPY
     Route: 065
  3. LEUCOVORIN. [Suspect]
     Active Substance: LEUCOVORIN
     Dosage: SECOND THERAPY, 17 CYCLES
     Route: 065
  4. IRINOTECAN [Suspect]
     Active Substance: IRINOTECAN
     Indication: RECTOSIGMOID CANCER
     Dosage: DURING THE FIRST CYCLES OF THE FIRST (2 MONTHS, 4 CYCLES) AND SECOND THERAPY (10 MONTHS, 17 CYCLES)
     Route: 065
  5. ZALTRAP [Suspect]
     Active Substance: ZIV-AFLIBERCEPT
     Indication: RECTOSIGMOID CANCER
     Dosage: DURING THE FIRST AND LAST CYCLES OF THE FIRST (2 MONTHS; 4 CYCLES) AND SECOND THERAPY (10 MONTHS;...
     Route: 065
  6. IRINOTECAN [Suspect]
     Active Substance: IRINOTECAN
     Dosage: DURING THE LAST CYCLE OF THE SECOND THERAPY
     Route: 065
  7. LEUCOVORIN. [Suspect]
     Active Substance: LEUCOVORIN
     Indication: RECTOSIGMOID CANCER
     Dosage: FIRST THERAPY, 4 CYCLES
     Route: 065

REACTIONS (2)
  - Hyperbilirubinaemia [Unknown]
  - Toxicity to various agents [Unknown]
